FAERS Safety Report 6833949-0 (Version None)
Quarter: 2010Q3

REPORT INFORMATION
  Report Type: 
  Country: None (occurrence: None)
  Receive Date: 20100712
  Receipt Date: 20070405
  Transmission Date: 20110219
  Serious: No
  Sender: FDA-Public Use
  Company Number: US-PFIZER INC-2007028626

PATIENT
  Age: 61 Year
  Sex: Female
  Weight: 74.84 kg

DRUGS (6)
  1. CHANTIX [Suspect]
     Indication: SMOKING CESSATION THERAPY
     Dates: start: 20070101
  2. LITHIUM [Concomitant]
  3. ACETYLSALICYLIC ACID [Concomitant]
  4. THYROID TAB [Concomitant]
  5. ANTIHYPERTENSIVES [Concomitant]
  6. ALL OTHER THERAPEUTIC PRODUCTS [Concomitant]

REACTIONS (2)
  - NAUSEA [None]
  - VOMITING [None]
